FAERS Safety Report 9463265 (Version 1)
Quarter: 2013Q3

REPORT INFORMATION
  Report Type: Spontaneous
  Country: BE (occurrence: BE)
  Receive Date: 20130819
  Receipt Date: 20130819
  Transmission Date: 20140515
  Serious: Yes (Hospitalization)
  Sender: FDA-Public Use
  Company Number: BE-AMGEN-BELSP2013057551

PATIENT
  Age: 69 Year
  Sex: Male

DRUGS (1)
  1. ENBREL [Suspect]
     Indication: PSORIASIS
     Dosage: 50 MG, UNK
     Route: 058
     Dates: start: 20120806

REACTIONS (3)
  - Fall [Not Recovered/Not Resolved]
  - Eye injury [Not Recovered/Not Resolved]
  - Feeling hot [Unknown]
